FAERS Safety Report 8190932-3 (Version None)
Quarter: 2012Q1

REPORT INFORMATION
  Report Type: 
  Country: None (occurrence: None)
  Receive Date: 20120307
  Receipt Date: 20120229
  Transmission Date: 20120608
  Serious: Yes (Hospitalization)
  Sender: FDA-Public Use
  Company Number: FR-ABBOTT-12P-056-0910149-00

PATIENT
  Age: 37 Year
  Sex: Female

DRUGS (6)
  1. DEPAKENE [Suspect]
     Dosage: 1000 MG, EXTENDED RELEASE, DAILY
     Route: 048
     Dates: start: 20120112
  2. QUETIAPINE [Suspect]
     Indication: PSYCHOTIC DISORDER
     Dosage: EXTENDED-RELEASE
     Route: 048
  3. TRILEPTAL [Suspect]
     Indication: EPILEPSY
     Route: 048
     Dates: start: 20111102, end: 20120109
  4. DEPAKENE [Suspect]
     Dosage: 500 MG, EXTENDED RELEASE, DAILY
     Route: 048
     Dates: start: 20120109
  5. DEPAKENE [Suspect]
     Indication: EPILEPSY
     Dosage: 250 MG, EXTENDED RELEASE, DAILY
     Route: 048
  6. HALDOL [Suspect]
     Indication: PSYCHOTIC DISORDER
     Route: 048
     Dates: start: 20111102, end: 20111201

REACTIONS (1)
  - NEUTROPENIA [None]
